FAERS Safety Report 9286113 (Version 1)
Quarter: 2013Q2

REPORT INFORMATION
  Report Type: Spontaneous
  Country: US (occurrence: None)
  Receive Date: 20130510
  Receipt Date: 20130510
  Transmission Date: 20140414
  Serious: No
  Sender: FDA-Public Use
  Company Number: None

PATIENT
  Age: 57 Year
  Sex: Male

DRUGS (2)
  1. SERTRALINE [Suspect]
     Route: 048
     Dates: start: 20121017, end: 20121024
  2. QUETIAPINE [Suspect]
     Route: 048
     Dates: start: 20120901

REACTIONS (2)
  - Agitation [None]
  - Confusional state [None]
